FAERS Safety Report 6049141-6 (Version None)
Quarter: 2009Q1

REPORT INFORMATION
  Report Type: 
  Country: None (occurrence: None)
  Receive Date: 20090123
  Receipt Date: 20090115
  Transmission Date: 20090719
  Serious: Yes (Death, Hospitalization, Other)
  Sender: FDA-Public Use
  Company Number: FR-ABBOTT-09P-056-0499005-00

PATIENT
  Sex: Male

DRUGS (6)
  1. LEUPROLIDE ACETATE [Suspect]
     Indication: DRUG USE FOR UNKNOWN INDICATION
     Route: 030
     Dates: start: 20081020, end: 20081020
  2. MYOLASTAN [Suspect]
     Indication: MYALGIA
     Route: 048
     Dates: start: 20081022, end: 20081031
  3. OPTALIDON [Suspect]
     Indication: DRUG USE FOR UNKNOWN INDICATION
     Dates: start: 20081022, end: 20081028
  4. OPATANOL [Concomitant]
     Indication: DRUG USE FOR UNKNOWN INDICATION
     Dosage: 1MG/ML DAILY
     Route: 047
  5. ALDACTAZINE [Concomitant]
     Indication: DRUG USE FOR UNKNOWN INDICATION
     Route: 048
     Dates: start: 19780101
  6. CARTROL [Concomitant]
     Indication: DRUG USE FOR UNKNOWN INDICATION
     Route: 047
     Dates: end: 20081128

REACTIONS (38)
  - ALLERGIC GRANULOMATOUS ANGIITIS [None]
  - ANTI-NEUTROPHIL CYTOPLASMIC ANTIBODY POSITIVE VASCULITIS [None]
  - ASTHENIA [None]
  - BLOOD BICARBONATE DECREASED [None]
  - BLOOD CREATININE INCREASED [None]
  - BONE MARROW OEDEMA [None]
  - CHEILITIS [None]
  - CONJUNCTIVITIS [None]
  - DIARRHOEA [None]
  - DRUG RASH WITH EOSINOPHILIA AND SYSTEMIC SYMPTOMS [None]
  - DYSPHAGIA [None]
  - ENDOCARDITIS [None]
  - EOSINOPHILIA [None]
  - ERYTHEMA [None]
  - HYPERVENTILATION [None]
  - HYPOCAPNIA [None]
  - HYPONATRAEMIA [None]
  - INFECTION [None]
  - LYMPHADENOPATHY [None]
  - METABOLIC ACIDOSIS [None]
  - MOUTH ULCERATION [None]
  - MULTI-ORGAN FAILURE [None]
  - MYALGIA [None]
  - NASAL CONGESTION [None]
  - OEDEMA PERIPHERAL [None]
  - OROPHARYNGEAL PAIN [None]
  - PARANEOPLASTIC SYNDROME [None]
  - PURPURA [None]
  - PYREXIA [None]
  - RASH [None]
  - RENAL FAILURE [None]
  - RHINORRHOEA [None]
  - SEPTIC SHOCK [None]
  - SHOCK [None]
  - TACHYPNOEA [None]
  - URINARY TRACT INFECTION [None]
  - VASCULITIS [None]
  - WEGENER'S GRANULOMATOSIS [None]
